FAERS Safety Report 6646191-3 (Version None)
Quarter: 2010Q1

REPORT INFORMATION
  Report Type: 
  Country: None (occurrence: None)
  Receive Date: 20100322
  Receipt Date: 20100322
  Transmission Date: 20100710
  Serious: Yes (Hospitalization)
  Sender: FDA-Public Use
  Company Number: None

PATIENT
  Sex: Female
  Weight: 104.3273 kg

DRUGS (1)
  1. CATAPRES-TTS-2 [Suspect]
     Indication: HYPERTENSION
     Dosage: 1 PATCH A WEEK

REACTIONS (2)
  - APPLICATION SITE VESICLES [None]
  - DYSPNOEA [None]
